FAERS Safety Report 5866076-X (Version None)
Quarter: 2008Q3

REPORT INFORMATION
  Report Type: 
  Country: None (occurrence: None)
  Receive Date: 20080829
  Receipt Date: 20080829
  Transmission Date: 20090109
  Serious: Yes (Life-Threatening, Hospitalization, Other)
  Sender: FDA-Public Use
  Company Number: US-BOEHRINGER INGELHEIM GMBH, GERMANY-2007-BP-24724BP

PATIENT
  Age: 75 Year
  Sex: Female

DRUGS (10)
  1. MOBIC [Suspect]
     Indication: OSTEOARTHRITIS
     Dates: start: 20071010, end: 20071015
  2. MOBIC [Suspect]
     Route: 048
     Dates: start: 20071016, end: 20071027
  3. STUDY DRUG [Suspect]
     Indication: OSTEOARTHRITIS
     Dates: start: 20070925, end: 20071027
  4. LEVOXYL [Concomitant]
  5. METOPROLOL TARTRATE [Concomitant]
  6. ENALAPRIL MALEATE [Concomitant]
  7. HYDROCHLOROTHIAZIDE [Concomitant]
  8. SENOKOT [Concomitant]
  9. COLACE [Concomitant]
  10. ASPIRIN [Concomitant]

REACTIONS (23)
  - ANGIOEDEMA [None]
  - BLOOD PRESSURE INCREASED [None]
  - BLOOD THYROID STIMULATING HORMONE DECREASED [None]
  - CONSTIPATION [None]
  - DRY MOUTH [None]
  - DYSPHAGIA [None]
  - DYSPHONIA [None]
  - DYSPNOEA [None]
  - HEART RATE DECREASED [None]
  - LUNG INFILTRATION [None]
  - NASAL CONGESTION [None]
  - NASAL MUCOSAL DISORDER [None]
  - NASAL OEDEMA [None]
  - OROPHARYNGEAL SWELLING [None]
  - PHARYNGEAL ERYTHEMA [None]
  - PHARYNGEAL OEDEMA [None]
  - RHINORRHOEA [None]
  - SOMNOLENCE [None]
  - SWOLLEN TONGUE [None]
  - THYROGLOBULIN INCREASED [None]
  - THYROID MASS [None]
  - UPPER RESPIRATORY TRACT CONGESTION [None]
  - VASCULAR ANOMALY [None]
